FAERS Safety Report 5618667-9 (Version None)
Quarter: 2008Q1

REPORT INFORMATION
  Report Type: 
  Country: None (occurrence: None)
  Receive Date: 20080205
  Receipt Date: 20080205
  Transmission Date: 20080703
  Serious: No
  Sender: FDA-Public Use
  Company Number: None

PATIENT
  Sex: Male
  Weight: 77.1115 kg

DRUGS (1)
  1. CHANTIX [Suspect]
     Indication: SMOKING CESSATION THERAPY
     Dosage: 1 MG AS DIRECTED PO
     Route: 048
     Dates: start: 20070901, end: 20071101

REACTIONS (6)
  - ABNORMAL BEHAVIOUR [None]
  - ANGER [None]
  - ANHEDONIA [None]
  - DEPRESSION [None]
  - FAMILY STRESS [None]
  - VIOLENCE-RELATED SYMPTOM [None]
